FAERS Safety Report 16122934 (Version 1)
Quarter: 2019Q1

REPORT INFORMATION
  Report Type: Report from Study
  Country: AU (occurrence: AU)
  Receive Date: 20190327
  Receipt Date: 20190327
  Transmission Date: 20190418
  Serious: Yes (Hospitalization, Other)
  Sender: FDA-Public Use
  Company Number: AU-JNJFOC-20190329294

PATIENT
  Sex: Female

DRUGS (4)
  1. EZETROL [Concomitant]
     Active Substance: EZETIMIBE
     Indication: BLOOD CHOLESTEROL
     Route: 048
  2. GEMFIBROZIL. [Concomitant]
     Active Substance: GEMFIBROZIL
     Indication: BLOOD CHOLESTEROL
     Route: 048
  3. NOTEN [Concomitant]
     Active Substance: ATENOLOL
     Indication: BLOOD PRESSURE MEASUREMENT
     Route: 048
  4. IMBRUVICA [Suspect]
     Active Substance: IBRUTINIB
     Indication: CHRONIC LYMPHOCYTIC LEUKAEMIA
     Route: 048
     Dates: start: 201609

REACTIONS (9)
  - Haematoma [Unknown]
  - Myalgia [Unknown]
  - Skin cancer [Unknown]
  - Urinary retention [Unknown]
  - Paraesthesia [Unknown]
  - Urinary tract infection [Unknown]
  - Hypoaesthesia [Recovered/Resolved]
  - Hypotension [Unknown]
  - Renal impairment [Unknown]
